FAERS Safety Report 4955523-3 (Version None)
Quarter: 2006Q1

REPORT INFORMATION
  Report Type: 
  Country: None (occurrence: None)
  Receive Date: 20060328
  Receipt Date: 20060317
  Transmission Date: 20060701
  Serious: Yes (Death)
  Sender: FDA-Public Use
  Company Number: JP-BRISTOL-MYERS SQUIBB COMPANY-13325295

PATIENT
  Age: 42 Year
  Sex: Female

DRUGS (8)
  1. ENDOXAN [Suspect]
     Indication: BONE MARROW TRANSPLANT
  2. PREDONINE [Concomitant]
     Indication: ADULT T-CELL LYMPHOMA/LEUKAEMIA
  3. CYTARABINE [Concomitant]
     Indication: BONE MARROW TRANSPLANT
  4. ONCOVIN [Concomitant]
     Indication: ADULT T-CELL LYMPHOMA/LEUKAEMIA
  5. ETOPOSIDE [Concomitant]
     Indication: ADULT T-CELL LYMPHOMA/LEUKAEMIA
  6. ADRIACIN [Concomitant]
     Indication: ADULT T-CELL LYMPHOMA/LEUKAEMIA
  7. METHOTREXATE [Concomitant]
     Indication: ADULT T-CELL LYMPHOMA/LEUKAEMIA
  8. RADIATION THERAPY [Concomitant]
     Indication: ADULT T-CELL LYMPHOMA/LEUKAEMIA

REACTIONS (2)
  - OESOPHAGEAL CARCINOMA [None]
  - TREATMENT RELATED SECONDARY MALIGNANCY [None]
